FAERS Safety Report 7247486-5 (Version None)
Quarter: 2011Q1

REPORT INFORMATION
  Report Type: 
  Country: None (occurrence: None)
  Receive Date: 20110127
  Receipt Date: 20110125
  Transmission Date: 20110831
  Serious: Yes (Life-Threatening)
  Sender: FDA-Public Use
  Company Number: GB-ROCHE-732247

PATIENT
  Age: 44 Year
  Sex: Female

DRUGS (5)
  1. CHLORPHENAMINE [Concomitant]
     Route: 042
  2. PARACETAMOL [Concomitant]
     Route: 042
  3. HYDROCORTISONE [Concomitant]
     Route: 042
  4. HERCEPTIN [Suspect]
     Indication: BREAST CANCER
     Route: 042
     Dates: start: 20100401, end: 20100901
  5. HERCEPTIN [Suspect]
     Dosage: DOSE FORM, FREQUENCY: NOT PROVIDED, DRUG WITHDRAWN
     Route: 042
     Dates: start: 20100920

REACTIONS (4)
  - CARDIOGENIC SHOCK [None]
  - HYPOTENSION [None]
  - CONGESTIVE CARDIOMYOPATHY [None]
  - DYSPNOEA [None]
